FAERS Safety Report 7353526-5 (Version None)
Quarter: 2011Q1

REPORT INFORMATION
  Report Type: 
  Country: None (occurrence: None)
  Receive Date: 20110310
  Receipt Date: 20110310
  Transmission Date: 20110831
  Serious: No
  Sender: FDA-Public Use
  Company Number: None

PATIENT
  Sex: Female
  Weight: 94.3482 kg

DRUGS (1)
  1. CHLORHEXIDINE GLUCONATE [Suspect]
     Indication: GINGIVAL INFECTION
     Dosage: TID ORAL
     Route: 048

REACTIONS (4)
  - SWOLLEN TONGUE [None]
  - VOMITING [None]
  - DIARRHOEA [None]
  - SWELLING FACE [None]
